FAERS Safety Report 23142528 (Version 2)
Quarter: 2024Q1

REPORT INFORMATION
  Report Type: Spontaneous
  Country: US (occurrence: US)
  Receive Date: 20231103
  Receipt Date: 20240315
  Transmission Date: 20240410
  Serious: Yes (Other)
  Sender: FDA-Public Use
  Company Number: US-UCBSA-2023051917

PATIENT
  Sex: Female

DRUGS (2)
  1. CIMZIA [Suspect]
     Active Substance: CERTOLIZUMAB PEGOL
     Indication: Rheumatoid arthritis
     Dosage: UNK
     Route: 058
     Dates: start: 202309
  2. CIMZIA [Suspect]
     Active Substance: CERTOLIZUMAB PEGOL
     Dosage: 200 MILLILITER, EV 2 WEEKS(QOW)
     Route: 058
     Dates: start: 202310

REACTIONS (2)
  - Rheumatoid arthritis [Unknown]
  - Therapeutic product effect delayed [Unknown]

NARRATIVE: CASE EVENT DATE: 20230101
